FAERS Safety Report 10238778 (Version 1)
Quarter: 2014Q2

REPORT INFORMATION
  Report Type: Spontaneous
  Country: US (occurrence: US)
  Receive Date: 20140616
  Receipt Date: 20140616
  Transmission Date: 20141212
  Serious: Yes (Hospitalization, Other)
  Sender: FDA-Public Use
  Company Number: US-ELI_LILLY_AND_COMPANY-US201406001406

PATIENT
  Age: 48 Year
  Sex: Male

DRUGS (5)
  1. HUMALOG LISPRO [Suspect]
     Indication: TYPE 1 DIABETES MELLITUS
     Dosage: UNK
     Route: 058
  2. CYCLOSPORIN [Concomitant]
  3. PREDNISONE [Concomitant]
  4. ALTACE [Concomitant]
  5. ALLOPURINOL [Concomitant]

REACTIONS (4)
  - Renal impairment [Unknown]
  - Blood potassium increased [Unknown]
  - Blood glucose increased [Unknown]
  - Drug dose omission [Unknown]
